FAERS Safety Report 6186542-X (Version None)
Quarter: 2009Q2

REPORT INFORMATION
  Report Type: 
  Country: None (occurrence: None)
  Receive Date: 20090508
  Receipt Date: 20090428
  Transmission Date: 20091009
  Serious: Yes (Other)
  Sender: FDA-Public Use
  Company Number: 2009-191652-NL

PATIENT
  Sex: Female
  Weight: 53 kg

DRUGS (5)
  1. IMPLANON [Suspect]
     Indication: CONTRACEPTION
     Dates: start: 20050101, end: 20070101
  2. IMPLANON [Suspect]
     Indication: CONTRACEPTION
     Dates: start: 20071019, end: 20071201
  3. DEXTROMETHORFAN [Concomitant]
  4. AMPHETAMINE SULFATE [Concomitant]
  5. HALLUCINOGEN [Concomitant]

REACTIONS (3)
  - ABORTION SPONTANEOUS [None]
  - DRUG EXPOSURE DURING PREGNANCY [None]
  - PREGNANCY WITH IMPLANT CONTRACEPTIVE [None]
